FAERS Safety Report 17429012 (Version 2)
Quarter: 2020Q1

REPORT INFORMATION
  Report Type: Spontaneous
  Country: CA (occurrence: CA)
  Receive Date: 20200218
  Receipt Date: 20200228
  Transmission Date: 20200409
  Serious: Yes (Other)
  Sender: FDA-Public Use
  Company Number: CA-GLAXOSMITHKLINE-CA2020AMR024204

PATIENT
  Sex: Female

DRUGS (2)
  1. BENLYSTA [Suspect]
     Active Substance: BELIMUMAB
     Indication: SYSTEMIC LUPUS ERYTHEMATOSUS
     Dosage: 1250 MG, 4 WEEKS
     Route: 042
     Dates: start: 20120302
  2. BENLYSTA [Suspect]
     Active Substance: BELIMUMAB
     Dosage: 1250 MG, 4 WEEKS
     Route: 042

REACTIONS (1)
  - Basal cell carcinoma [Unknown]
